FAERS Safety Report 8457926-1 (Version None)
Quarter: 2012Q2

REPORT INFORMATION
  Report Type: 
  Country: None (occurrence: None)
  Receive Date: 20120323
  Receipt Date: 20111213
  Transmission Date: 20120825
  Serious: Yes (Disabling)
  Sender: FDA-Public Use
  Company Number: 163-21880-11100894

PATIENT
  Age: 94 Year
  Sex: Female

DRUGS (1)
  1. REVLIMID [Suspect]
     Indication: 5Q MINUS SYNDROME
     Dosage: 5 MG, 1 IN 1D D, PO
     Route: 048
     Dates: start: 20110309, end: 20110101

REACTIONS (2)
  - ABNORMAL BEHAVIOUR [None]
  - HYPOTHYROIDISM [None]
